FAERS Safety Report 12510714 (Version 1)
Quarter: 2016Q2

REPORT INFORMATION
  Report Type: Spontaneous
  Country: DE (occurrence: DE)
  Receive Date: 20160629
  Receipt Date: 20160629
  Transmission Date: 20160815
  Serious: Yes (Death, Other)
  Sender: FDA-Public Use
  Company Number: DE-PFIZER INC-2016290534

PATIENT
  Age: 87 Year
  Sex: Female

DRUGS (19)
  1. LORAZEPAM. [Suspect]
     Active Substance: LORAZEPAM
     Dosage: 4 MG, UNK
     Route: 048
     Dates: start: 20150624
  2. LORAZEPAM. [Suspect]
     Active Substance: LORAZEPAM
     Dosage: 3 UNK, UNK
     Route: 048
     Dates: start: 20150629, end: 20150630
  3. XARELTO [Suspect]
     Active Substance: RIVAROXABAN
     Dosage: 15 MG, UNK
     Route: 048
     Dates: start: 20130226, end: 20150702
  4. LORAZEPAM. [Suspect]
     Active Substance: LORAZEPAM
     Dosage: 2 UNK, UNK
     Route: 048
     Dates: start: 20150702
  5. CIATYL [Suspect]
     Active Substance: CLOPENTHIXOL HYDROCHLORIDE
     Dosage: 3 MG, UNK
     Route: 048
     Dates: start: 20150702
  6. LORAZEPAM. [Suspect]
     Active Substance: LORAZEPAM
     Dosage: 4 UNK, UNK
     Route: 048
     Dates: start: 20150627, end: 20150628
  7. CIATYL [Suspect]
     Active Substance: CLOPENTHIXOL HYDROCHLORIDE
     Dosage: 2 MG, UNK
     Route: 048
     Dates: start: 20150623, end: 20150701
  8. PANTOPRAZOLE [Concomitant]
     Active Substance: PANTOPRAZOLE SODIUM
     Dosage: 20 MG, UNK
     Route: 048
     Dates: start: 20130403, end: 20150702
  9. LORAZEPAM. [Suspect]
     Active Substance: LORAZEPAM
     Dosage: 3.5 UNK, UNK
     Route: 048
     Dates: start: 20150107
  10. LORAZEPAM. [Suspect]
     Active Substance: LORAZEPAM
     Dosage: 3.5 UNK, UNK
     Route: 048
     Dates: start: 20150623
  11. LORAZEPAM. [Suspect]
     Active Substance: LORAZEPAM
     Dosage: 2 MG, UNK
     Route: 048
     Dates: start: 20150610, end: 20150616
  12. LORAZEPAM. [Suspect]
     Active Substance: LORAZEPAM
     Dosage: 2.5 MG, UNK
     Route: 048
     Dates: start: 20150617, end: 20150622
  13. LORAZEPAM. [Suspect]
     Active Substance: LORAZEPAM
     Dosage: 3 MG, UNK
     Route: 048
     Dates: start: 20150625, end: 20150626
  14. NOVAMINSULFON [Concomitant]
     Active Substance: METAMIZOLE
     Dosage: 2000 MG, UNK
     Route: 048
     Dates: start: 2014, end: 20150702
  15. FUROSEMIDE. [Concomitant]
     Active Substance: FUROSEMIDE
     Dosage: 20 MG, UNK
     Route: 048
     Dates: end: 20150702
  16. SODIUM BICARBONATE. [Concomitant]
     Active Substance: SODIUM BICARBONATE
     Dosage: 1000 ML, UNK
     Route: 042
     Dates: start: 20150702
  17. TRAZODONE [Suspect]
     Active Substance: TRAZODONE HYDROCHLORIDE
     Dosage: 75 MG, UNK
     Route: 048
     Dates: start: 20150623, end: 20150701
  18. MELPERONE [Suspect]
     Active Substance: MELPERONE
     Dosage: 100 MG, UNK
     Route: 048
     Dates: start: 2013, end: 20150702
  19. BISOPROLOL [Suspect]
     Active Substance: BISOPROLOL
     Dosage: 10 MG, UNK
     Route: 048
     Dates: end: 20150702

REACTIONS (6)
  - Fall [Unknown]
  - Diarrhoea [Unknown]
  - Traumatic haematoma [Unknown]
  - Death [Fatal]
  - Osteonecrosis [Unknown]
  - Dyspnoea [Unknown]

NARRATIVE: CASE EVENT DATE: 201506
